FAERS Safety Report 5302440-5 (Version None)
Quarter: 2007Q2

REPORT INFORMATION
  Report Type: 
  Country: None (occurrence: None)
  Receive Date: 20070419
  Receipt Date: 20070405
  Transmission Date: 20071010
  Serious: Yes (Other)
  Sender: FDA-Public Use
  Company Number: PHEH2007US04871

PATIENT
  Sex: Female

DRUGS (6)
  1. METOPROLOL SUCCINATE [Suspect]
     Dates: end: 20060101
  2. DETROL [Concomitant]
  3. SOTALOL HYDROCHLORIDE [Concomitant]
     Indication: HYPERTENSION
  4. COZAAR [Concomitant]
     Indication: HYPERTENSION
  5. LEVOTHYROXINE SODIUM [Concomitant]
  6. NOVOLOG [Concomitant]

REACTIONS (1)
  - ATRIAL FIBRILLATION [None]
